FAERS Safety Report 8189065-1 (Version None)
Quarter: 2012Q1

REPORT INFORMATION
  Report Type: 
  Country: None (occurrence: None)
  Receive Date: 20120307
  Receipt Date: 20120301
  Transmission Date: 20120608
  Serious: No
  Sender: FDA-Public Use
  Company Number: US-BIOGENIDEC-2012BI007701

PATIENT
  Age: 54 Year
  Sex: Female

DRUGS (3)
  1. MOBIC [Concomitant]
     Indication: SPONDYLITIS
  2. NABUMETONE [Concomitant]
     Indication: SPONDYLITIS
  3. TYSABRI [Suspect]
     Indication: MULTIPLE SCLEROSIS
     Route: 042
     Dates: start: 20120207

REACTIONS (5)
  - PARAESTHESIA [None]
  - OROPHARYNGEAL PAIN [None]
  - PHARYNGITIS STREPTOCOCCAL [None]
  - SLUGGISHNESS [None]
  - PAIN [None]
